FAERS Safety Report 14239159 (Version 4)
Quarter: 2018Q1

REPORT INFORMATION
  Report Type: Spontaneous
  Country: JP (occurrence: JP)
  Receive Date: 20171130
  Receipt Date: 20180124
  Transmission Date: 20180508
  Serious: Yes (Death, Hospitalization)
  Sender: FDA-Public Use
  Company Number: JP-ASTRAZENECA-2017SF09451

PATIENT
  Age: 29815 Day
  Sex: Male
  Weight: 38 kg

DRUGS (9)
  1. CELECOX [Concomitant]
     Active Substance: CELECOXIB
     Indication: NON-SMALL CELL LUNG CANCER
     Route: 048
  2. WARFARIN [Concomitant]
     Active Substance: WARFARIN
     Indication: ATRIAL FIBRILLATION
     Route: 048
  3. TAGRISSO [Suspect]
     Active Substance: OSIMERTINIB
     Indication: NON-SMALL CELL LUNG CANCER
     Route: 048
     Dates: start: 20171012, end: 20171023
  4. LANSOPRAZOLE. [Concomitant]
     Active Substance: LANSOPRAZOLE
     Indication: ATRIAL FIBRILLATION
     Route: 048
  5. NAFTOPIDIL [Concomitant]
     Active Substance: NAFTOPIDIL
     Indication: BENIGN PROSTATIC HYPERPLASIA
     Route: 048
  6. HALFDIGOXIN [Concomitant]
     Active Substance: DIGOXIN
     Indication: ATRIAL FIBRILLATION
     Route: 048
  7. AVOLVE [Concomitant]
     Active Substance: DUTASTERIDE
     Indication: BENIGN PROSTATIC HYPERPLASIA
     Route: 048
  8. DENOTAS [Concomitant]
     Active Substance: CALCIUM CARBONATE\CHOLECALCIFEROL\MAGNESIUM CARBONATE
     Indication: NON-SMALL CELL LUNG CANCER
     Route: 048
  9. OXYCODONE [Concomitant]
     Active Substance: OXYCODONE
     Indication: NON-SMALL CELL LUNG CANCER
     Route: 048

REACTIONS (3)
  - Pneumonia [Recovering/Resolving]
  - White blood cell count decreased [Not Recovered/Not Resolved]
  - Platelet count decreased [Recovering/Resolving]

NARRATIVE: CASE EVENT DATE: 20171017
